FAERS Safety Report 26215175 (Version 1)
Quarter: 2025Q4

REPORT INFORMATION
  Report Type: Spontaneous
  Country: US (occurrence: US)
  Receive Date: 20251230
  Receipt Date: 20251230
  Transmission Date: 20260117
  Serious: Yes (Hospitalization, Other)
  Sender: Pyros Pharmaceuticals
  Company Number: US-PYROS PHARMACEUTICALS, INC-20251001387

PATIENT
  Sex: Male

DRUGS (2)
  1. VIGAFYDE [Suspect]
     Active Substance: VIGABATRIN
     Indication: Early infantile epileptic encephalopathy with burst-suppression
     Dosage: UNK
     Route: 065
     Dates: start: 20251024
  2. VIGAFYDE [Suspect]
     Active Substance: VIGABATRIN
     Dosage: 900 MG, BID  (9 ML)
     Route: 048
     Dates: start: 20251023

REACTIONS (2)
  - Pneumonia [Unknown]
  - Respiratory rate increased [Not Recovered/Not Resolved]

NARRATIVE: CASE EVENT DATE: 20250101
